FAERS Safety Report 4759893-0 (Version None)
Quarter: 2005Q3

REPORT INFORMATION
  Report Type: 
  Country: None (occurrence: None)
  Receive Date: 20050831
  Receipt Date: 20050831
  Transmission Date: 20060218
  Serious: Yes (Death)
  Sender: FDA-Public Use
  Company Number: None

PATIENT
  Age: 69 Year
  Sex: Male
  Weight: 90.7194 kg

DRUGS (1)
  1. PROTAMINE [Suspect]
     Dosage: 300 MG IV OVER 10 MIN 50 MG IV OVER 10 MIN 16 MINUTES AFTER 1ST DOSE
     Route: 042
     Dates: start: 20040824

REACTIONS (4)
  - HYPOTENSION [None]
  - PROCEDURAL COMPLICATION [None]
  - PULMONARY HYPERTENSION [None]
  - THERAPY NON-RESPONDER [None]
